FAERS Safety Report 25441703 (Version 1)
Quarter: 2025Q2

REPORT INFORMATION
  Report Type: Spontaneous
  Country: FR (occurrence: FR)
  Receive Date: 20250616
  Receipt Date: 20250616
  Transmission Date: 20250716
  Serious: Yes (Other)
  Sender: GUERBET
  Company Number: FR-GUERBETG-FR-20250221

PATIENT
  Age: 68 Year
  Sex: Male
  Weight: 74 kg

DRUGS (1)
  1. GADOTERATE MEGLUMINE [Suspect]
     Active Substance: GADOTERATE MEGLUMINE
     Indication: Magnetic resonance imaging prostate
     Dosage: DOTAREM WAS ADMINISTERED TWICE DURING THE PROCEDURE, ONCE BEFORE THE MRI AND AGAIN MIDWAY THROUGH TH
     Route: 051
     Dates: start: 20250505, end: 20250505

REACTIONS (3)
  - Arthralgia [Not Recovered/Not Resolved]
  - Extravasation [Unknown]
  - Skin discolouration [Recovering/Resolving]

NARRATIVE: CASE EVENT DATE: 20250505
